FAERS Safety Report 6714046-1 (Version None)
Quarter: 2010Q2

REPORT INFORMATION
  Report Type: 
  Country: None (occurrence: None)
  Receive Date: 20100506
  Receipt Date: 20100426
  Transmission Date: 20101027
  Serious: Yes (Other)
  Sender: FDA-Public Use
  Company Number: US-JNJFOC-20100407486

PATIENT
  Sex: Female
  Weight: 88.45 kg

DRUGS (7)
  1. REMICADE [Suspect]
     Indication: RHEUMATOID ARTHRITIS
     Dosage: 8TH INFUSION
     Route: 042
  2. REMICADE [Suspect]
     Dosage: INFUSIONS 1 TO 7
     Route: 042
  3. CELEBREX [Concomitant]
     Indication: RHEUMATOID ARTHRITIS
  4. ALDACTAZIDE [Concomitant]
     Indication: HYPERTENSION
  5. ZOCOR [Concomitant]
     Indication: BLOOD CHOLESTEROL INCREASED
  6. ALBUTEROL [Concomitant]
     Indication: LUNG DISORDER
  7. COUMADIN [Concomitant]
     Indication: PULMONARY THROMBOSIS

REACTIONS (3)
  - ANAPHYLACTIC SHOCK [None]
  - INFUSION RELATED REACTION [None]
  - PULMONARY EMBOLISM [None]
